FAERS Safety Report 5639367-5 (Version None)
Quarter: 2008Q1

REPORT INFORMATION
  Report Type: 
  Country: None (occurrence: None)
  Receive Date: 20080226
  Receipt Date: 20080218
  Transmission Date: 20080703
  Serious: Yes (Other)
  Sender: FDA-Public Use
  Company Number: JP-PFIZER INC-2007103071

PATIENT
  Sex: Male

DRUGS (4)
  1. DETRUSITOL SR [Suspect]
     Indication: HYPERTONIC BLADDER
     Route: 048
  2. DEPAS [Concomitant]
     Route: 048
  3. FLIVAS [Concomitant]
     Route: 048
  4. BLADDERON [Concomitant]
     Route: 048
     Dates: start: 20070605, end: 20071120

REACTIONS (1)
  - TINNITUS [None]
